FAERS Safety Report 6771143-2 (Version None)
Quarter: 2010Q2

REPORT INFORMATION
  Report Type: 
  Country: None (occurrence: None)
  Receive Date: 20100614
  Receipt Date: 20100614
  Transmission Date: 20101027
  Serious: Yes (Hospitalization)
  Sender: FDA-Public Use
  Company Number: None

PATIENT
  Sex: Female
  Weight: 77.1115 kg

DRUGS (1)
  1. PAXIL [Suspect]
     Indication: NEOPLASM MALIGNANT
     Dosage: 20 MG
     Dates: start: 20080609, end: 20100531

REACTIONS (6)
  - CONSTIPATION [None]
  - DYSPEPSIA [None]
  - FAECES DISCOLOURED [None]
  - GASTROINTESTINAL PAIN [None]
  - MELAENA [None]
  - NAUSEA [None]
